FAERS Safety Report 10881785 (Version 4)
Quarter: 2017Q2

REPORT INFORMATION
  Report Type: Report from Study
  Country: FR (occurrence: FR)
  Receive Date: 20150303
  Receipt Date: 20170503
  Transmission Date: 20170829
  Serious: Yes (Other)
  Sender: FDA-Public Use
  Company Number: FR-ROCHE-1305809

PATIENT

DRUGS (2)
  1. TRASTUZUMAB [Suspect]
     Active Substance: TRASTUZUMAB
     Indication: BREAST CANCER
     Route: 065
  2. BEVACIZUMAB [Suspect]
     Active Substance: BEVACIZUMAB
     Indication: BREAST CANCER
     Route: 065

REACTIONS (8)
  - Oesophagitis [Unknown]
  - Telangiectasia [Unknown]
  - Dyspnoea [Unknown]
  - Radiation skin injury [Unknown]
  - Pain [Unknown]
  - Lymphoedema [Unknown]
  - Left ventricular dysfunction [Unknown]
  - Fibrosis [Unknown]
